FAERS Safety Report 10644680 (Version 2)
Quarter: 2014Q4

REPORT INFORMATION
  Report Type: Spontaneous
  Country: DE (occurrence: DE)
  Receive Date: 20141210
  Receipt Date: 20141224
  Transmission Date: 20150529
  Serious: Yes (Death)
  Sender: FDA-Public Use
  Company Number: DE-ROCHE-1501935

PATIENT
  Age: 56 Year
  Sex: Male

DRUGS (2)
  1. VEMURAFENIB [Suspect]
     Active Substance: VEMURAFENIB
     Indication: PRODUCT USED FOR UNKNOWN INDICATION
     Dosage: 2 X 960 MG
     Route: 048
     Dates: start: 201404, end: 20140930
  2. TRAMETINIB [Concomitant]
     Active Substance: TRAMETINIB
     Route: 065

REACTIONS (11)
  - Dyspnoea [Fatal]
  - General physical health deterioration [Unknown]
  - Pleural effusion [Unknown]
  - Dry skin [Unknown]
  - Electrocardiogram QT prolonged [Unknown]
  - Malignant neoplasm progression [Fatal]
  - Dysgeusia [Unknown]
  - Milia [Unknown]
  - Blood lactate dehydrogenase increased [Unknown]
  - C-reactive protein increased [Unknown]
  - Protein S increased [Unknown]

NARRATIVE: CASE EVENT DATE: 201406
